FAERS Safety Report 8349485-9 (Version None)
Quarter: 2012Q2

REPORT INFORMATION
  Report Type: 
  Country: None (occurrence: None)
  Receive Date: 20120510
  Receipt Date: 20120504
  Transmission Date: 20120825
  Serious: Yes (Other)
  Sender: FDA-Public Use
  Company Number: US-ASTRAZENECA-2012SE20721

PATIENT
  Age: 75 Year
  Sex: Male
  Weight: 69.4 kg

DRUGS (9)
  1. ALBUTEROL SULFATE AUTOHALER [Concomitant]
     Dosage: 2 PUFF BY INHALATION ROUTE EVERY 4-6 HOURS AS NEEDED
     Dates: start: 20120214
  2. XANAX [Concomitant]
     Indication: ANXIETY
     Dates: start: 20111115
  3. SYMBICORT [Suspect]
     Dosage: 160/4.5 MCG 2 PUFFS 2 TIMES EVERY DAY
     Route: 055
     Dates: start: 20120214
  4. ALBUTEROL SULFATE AUTOHALER [Concomitant]
     Dosage: 2 PUFF BY INHALATION ROUTE EVERY 4-6 HOURS AS NEEDED
     Dates: start: 20111219
  5. HYDROCORTISONE [Concomitant]
     Dosage: SMALL AMOUNT 2 TIMES A EVERY DAY TO THE AFFECTED AREA
     Route: 061
     Dates: start: 20111223
  6. XANAX [Concomitant]
     Dates: start: 20120214
  7. SYMBICORT [Suspect]
     Indication: ASTHMA
     Dosage: 160/4.5 MCG 2 PUFFS 2 TIMES EVERY DAY
     Route: 055
     Dates: start: 20111115
  8. LISINOPRIL [Suspect]
     Route: 048
     Dates: start: 20120214
  9. WARFARIN SODIUM [Suspect]
     Dates: start: 20050101

REACTIONS (7)
  - CEREBRAL HAEMORRHAGE [None]
  - COAGULOPATHY [None]
  - CHRONIC OBSTRUCTIVE PULMONARY DISEASE [None]
  - COAGULATION TIME PROLONGED [None]
  - PETECHIAE [None]
  - HYPERTENSION [None]
  - ANXIETY [None]
